FAERS Safety Report 16968919 (Version 2)
Quarter: 2020Q1

REPORT INFORMATION
  Report Type: Spontaneous
  Country: GB (occurrence: GB)
  Receive Date: 20191029
  Receipt Date: 20200113
  Transmission Date: 20200409
  Serious: Yes (Other)
  Sender: FDA-Public Use
  Company Number: GB-TEVA-2019-GB-1128316

PATIENT
  Age: 56 Year
  Sex: Male
  Weight: 128 kg

DRUGS (6)
  1. FENBID [Concomitant]
     Active Substance: IBUPROFEN
     Dosage: 3 DOSAGE FORMS
     Dates: start: 20190711, end: 20190808
  2. IRBESARTAN. [Concomitant]
     Active Substance: IRBESARTAN
     Dosage: TAKE IN MORNING 1 DOSAGE FORMS
     Dates: start: 20160701, end: 20190802
  3. FOLIC ACID. [Concomitant]
     Active Substance: FOLIC ACID
     Dosage: FOR 2 MONTHS 1 DOSAGE FORMS
     Dates: start: 20190715, end: 20190909
  4. AMLODIPINE [Suspect]
     Active Substance: AMLODIPINE BESYLATE
     Dosage: 5 MG
     Dates: start: 20190711
  5. BENDROFLUMETHIAZIDE [Concomitant]
     Active Substance: BENDROFLUMETHIAZIDE
     Dosage: TAKE IN MORNING 1 DOSAGE FORMS
     Dates: start: 20190802
  6. ATENOLOL. [Concomitant]
     Active Substance: ATENOLOL
     Dosage: TAKE IN MORNING 1 DOSAGE FORMS
     Dates: start: 20160701

REACTIONS (3)
  - Peripheral swelling [Unknown]
  - Joint swelling [Recovering/Resolving]
  - Blister [Unknown]
